FAERS Safety Report 6037263-5 (Version None)
Quarter: 2009Q1

REPORT INFORMATION
  Report Type: 
  Country: None (occurrence: None)
  Receive Date: 20090114
  Receipt Date: 20090112
  Transmission Date: 20090719
  Serious: Yes (Hospitalization)
  Sender: FDA-Public Use
  Company Number: A0763019A

PATIENT
  Age: 69 Year
  Sex: Female

DRUGS (3)
  1. VENTOLIN [Suspect]
     Indication: ASTHMA
     Dosage: 1PUFF AS REQUIRED
     Route: 055
     Dates: start: 20090102
  2. ADVAIR DISKUS 100/50 [Suspect]
     Indication: ASTHMA
     Route: 055
     Dates: start: 20040101
  3. XOPENEX [Concomitant]

REACTIONS (6)
  - CARDIAC ABLATION [None]
  - CARDIAC DISORDER [None]
  - COUGH [None]
  - HEART RATE INCREASED [None]
  - PALPITATIONS [None]
  - THROAT TIGHTNESS [None]
